FAERS Safety Report 8322223-1 (Version None)
Quarter: 2012Q2

REPORT INFORMATION
  Report Type: 
  Country: None (occurrence: None)
  Receive Date: 20120430
  Receipt Date: 20120312
  Transmission Date: 20120825
  Serious: No
  Sender: FDA-Public Use
  Company Number: US-COVIDIEN/TYCO HEALTHCARE/MALLINCKRODT-T201201043

PATIENT
  Sex: Male

DRUGS (3)
  1. FLURAZEPAM [Concomitant]
     Indication: INSOMNIA
     Dosage: UNK
     Route: 048
  2. HYDROCODONE BITARTRATE + ACETAMINOPHEN [Concomitant]
     Dosage: 7.5/325 MG
  3. HYDROCODONE BITARTRATE + ACETAMINOPHEN [Suspect]
     Indication: BACK PAIN
     Dosage: 1 TAB Q4-6 HOURS PRN
     Route: 048
     Dates: start: 20120306

REACTIONS (3)
  - HEADACHE [None]
  - ANXIETY [None]
  - DRUG INEFFECTIVE [None]
